FAERS Safety Report 4900292-6 (Version None)
Quarter: 2006Q1

REPORT INFORMATION
  Report Type: 
  Country: None (occurrence: None)
  Receive Date: 20060203
  Receipt Date: 20060126
  Transmission Date: 20060701
  Serious: Yes (Other)
  Sender: FDA-Public Use
  Company Number: US-JNJFOC-20051203651

PATIENT
  Sex: Male

DRUGS (1)
  1. REMICADE [Suspect]
     Indication: KAWASAKI'S DISEASE
     Route: 042

REACTIONS (2)
  - MUSCLE RUPTURE [None]
  - MUSCLE SPASMS [None]
